FAERS Safety Report 4324842-6 (Version None)
Quarter: 2004Q1

REPORT INFORMATION
  Report Type: 
  Country: None (occurrence: None)
  Receive Date: 20040326
  Receipt Date: 20040319
  Transmission Date: 20041129
  Serious: Yes (Life-Threatening, Hospitalization)
  Sender: FDA-Public Use
  Company Number: US-BRISTOL-MYERS SQUIBB COMPANY-12538179

PATIENT
  Age: 71 Year
  Sex: Male
  Weight: 73 kg

DRUGS (4)
  1. COUMADIN [Suspect]
     Indication: DEEP VEIN THROMBOSIS
     Dosage: DOSAGE: VARIES BETWEEN 6 MG AND 7 MG
     Route: 048
  2. TRAZODONE HCL [Suspect]
     Dosage: DURATION: 5 TO 6 DAYS
     Dates: start: 20040101
  3. FLU VACCINE [Suspect]
     Dates: start: 20031201, end: 20031201
  4. AMBIEN [Concomitant]
     Indication: INSOMNIA
     Dates: start: 20040119

REACTIONS (3)
  - HORDEOLUM [None]
  - INSOMNIA [None]
  - SUICIDE ATTEMPT [None]
